FAERS Safety Report 18116999 (Version 3)
Quarter: 2020Q3

REPORT INFORMATION
  Report Type: Report from Study
  Country: CL (occurrence: CL)
  Receive Date: 20200806
  Receipt Date: 20200821
  Transmission Date: 20201103
  Serious: Yes (Other)
  Sender: FDA-Public Use
  Company Number: CL-SA-2020SA183828

PATIENT

DRUGS (9)
  1. HYDROCORTISONE. [Concomitant]
     Active Substance: HYDROCORTISONE
     Indication: PRE-EXISTING DISEASE
     Dosage: 100 MG, TID
     Route: 042
     Dates: start: 20200621, end: 20200622
  2. DEXAMETHASONE. [Concomitant]
     Active Substance: DEXAMETHASONE
     Indication: PRE-EXISTING DISEASE
     Dosage: 12 MG, QD
     Route: 042
     Dates: start: 20200625, end: 20200626
  3. ACETAMINOPHEN. [Concomitant]
     Active Substance: ACETAMINOPHEN
     Indication: PRE-EXISTING DISEASE
     Dosage: 1 G, TID
     Route: 002
     Dates: start: 20200623, end: 20200624
  4. ACETAMINOPHEN. [Concomitant]
     Active Substance: ACETAMINOPHEN
     Dosage: 1 G, TID
     Route: 042
     Dates: start: 20200625, end: 20200627
  5. SARILUMAB [Suspect]
     Active Substance: SARILUMAB
     Indication: COVID-19
     Dosage: INTENDED DOSE OF 1 BAG, INFUSION RATE OF 100ML/H,  1X
     Route: 042
     Dates: start: 20200625, end: 20200625
  6. DEXAMETHASONE. [Concomitant]
     Active Substance: DEXAMETHASONE
     Dosage: 15 MG, BID
     Route: 042
     Dates: start: 20200627, end: 20200628
  7. CEFTRIAXONE. [Concomitant]
     Active Substance: CEFTRIAXONE
     Indication: PRE-EXISTING DISEASE
     Dosage: 1 G, QD
     Route: 042
     Dates: start: 20200621, end: 20200622
  8. AMPICILLIN AND SULBACTAM [Concomitant]
     Active Substance: AMPICILLIN SODIUM\SULBACTAM SODIUM
     Indication: PRE-EXISTING DISEASE
     Dosage: 3 G, QID
     Route: 042
     Dates: start: 20200623, end: 20200628
  9. METHYLPREDNISOLONE. [Concomitant]
     Active Substance: METHYLPREDNISOLONE
     Indication: PRE-EXISTING DISEASE
     Dosage: 120 MG, QD
     Route: 042
     Dates: start: 20200623, end: 20200625

REACTIONS (1)
  - Alanine aminotransferase increased [Recovered/Resolved]

NARRATIVE: CASE EVENT DATE: 20200628
